FAERS Safety Report 6263978-X (Version None)
Quarter: 2009Q3

REPORT INFORMATION
  Report Type: 
  Country: None (occurrence: None)
  Receive Date: 20090710
  Receipt Date: 20090702
  Transmission Date: 20100115
  Serious: Yes (Hospitalization, Other)
  Sender: FDA-Public Use
  Company Number: DE-NOVOPROD-280263

PATIENT
  Sex: Female
  Weight: 50 kg

DRUGS (4)
  1. LEVEMIR [Suspect]
     Indication: TYPE 1 DIABETES MELLITUS
     Dosage: 44 U, QD
     Route: 058
     Dates: start: 20070215, end: 20070301
  2. LEVEMIR [Suspect]
     Dates: start: 20070314, end: 20070620
  3. HUMALOG [Concomitant]
     Dosage: UNK, QD
     Route: 058
  4. INSULIN PROTAPHANA? FLEXPENA? 100 IU/ML [Concomitant]
     Dates: start: 20070301, end: 20070313

REACTIONS (5)
  - ABDOMINAL PAIN [None]
  - APPENDICECTOMY [None]
  - POLYNEUROPATHY [None]
  - PRURITUS [None]
  - SLEEP DISORDER [None]
